FAERS Safety Report 7772760-3 (Version None)
Quarter: 2011Q3

REPORT INFORMATION
  Report Type: 
  Country: None (occurrence: None)
  Receive Date: 20110922
  Receipt Date: 20101104
  Transmission Date: 20111222
  Serious: No
  Sender: FDA-Public Use
  Company Number: US-ASTRAZENECA-2010SE52586

PATIENT
  Sex: Male

DRUGS (2)
  1. SEROQUEL XR [Suspect]
     Indication: DEPRESSION
     Route: 048
  2. SEROQUEL XR [Suspect]
     Route: 048

REACTIONS (5)
  - URINE OUTPUT DECREASED [None]
  - DIABETES MELLITUS [None]
  - SOMNOLENCE [None]
  - WEIGHT INCREASED [None]
  - BENIGN PROSTATIC HYPERPLASIA [None]
